FAERS Safety Report 8077722-7 (Version None)
Quarter: 2012Q1

REPORT INFORMATION
  Report Type: 
  Country: None (occurrence: None)
  Receive Date: 20120127
  Receipt Date: 20120125
  Transmission Date: 20120608
  Serious: Yes (Hospitalization)
  Sender: FDA-Public Use
  Company Number: ES-PFIZER INC-2012019990

PATIENT
  Age: 14 Year
  Sex: Male

DRUGS (2)
  1. ZITHROMAX [Suspect]
     Indication: PHARYNGITIS
     Dosage: 500 MG, UNK
     Route: 048
     Dates: start: 20110829
  2. DALSY [Concomitant]
     Indication: PHARYNGITIS
     Dosage: UNK

REACTIONS (9)
  - PYREXIA [None]
  - AGGRESSION [None]
  - NIGHTMARE [None]
  - HALLUCINATION [None]
  - ABDOMINAL DISCOMFORT [None]
  - CONVULSION [None]
  - LOSS OF CONSCIOUSNESS [None]
  - DIARRHOEA [None]
  - DELIRIUM [None]
